FAERS Safety Report 10908526 (Version 1)
Quarter: 2015Q1

REPORT INFORMATION
  Report Type: Spontaneous
  Country: US (occurrence: US)
  Receive Date: 20150312
  Receipt Date: 20150312
  Transmission Date: 20150721
  Serious: Yes (Other)
  Sender: FDA-Public Use
  Company Number: US-WATSON-2015-04827

PATIENT

DRUGS (1)
  1. ANDRODERM [Suspect]
     Active Substance: TESTOSTERONE
     Indication: BLOOD TESTOSTERONE DECREASED
     Route: 065

REACTIONS (2)
  - Cerebral infarction [None]
  - Cerebrovascular accident [Unknown]

NARRATIVE: CASE EVENT DATE: 20130225
